FAERS Safety Report 9849949 (Version 1)
Quarter: 2014Q1

REPORT INFORMATION
  Report Type: Other
  Country: GB (occurrence: GB)
  Receive Date: 20140128
  Receipt Date: 20140128
  Transmission Date: 20141002
  Serious: Yes (Hospitalization)
  Sender: FDA-Public Use
  Company Number: GB-CUBIST PHARMACEUTICAL, INC.-2014CBST000064

PATIENT
  Sex: 0

DRUGS (2)
  1. CUBICIN [Suspect]
     Indication: INTERVERTEBRAL DISCITIS
     Dosage: 7.7 MG/KG, QD
     Route: 042
     Dates: start: 20131128, end: 20131218
  2. CUBICIN [Suspect]
     Indication: OFF LABEL USE
     Dosage: 700 MG, QD
     Route: 042
     Dates: start: 20131128, end: 20131218

REACTIONS (1)
  - Alveolitis allergic [Recovering/Resolving]
